FAERS Safety Report 4828760-6 (Version None)
Quarter: 2005Q4

REPORT INFORMATION
  Report Type: 
  Country: None (occurrence: None)
  Receive Date: 20051115
  Receipt Date: 20050922
  Transmission Date: 20060501
  Serious: Yes (Death, Life-Threatening, Other)
  Sender: FDA-Public Use
  Company Number: PHBS2005JP15654

PATIENT
  Age: 44 Year
  Sex: Female

DRUGS (2)
  1. TEGRETOL [Suspect]
     Route: 065
  2. RAVONAL [Suspect]

REACTIONS (4)
  - APLASIA PURE RED CELL [None]
  - DEATH [None]
  - DRUG INTERACTION [None]
  - NEOPLASM MALIGNANT [None]
